FAERS Safety Report 8185183-2 (Version None)
Quarter: 2012Q1

REPORT INFORMATION
  Report Type: 
  Country: None (occurrence: None)
  Receive Date: 20120305
  Receipt Date: 20120222
  Transmission Date: 20120608
  Serious: Yes (Hospitalization, Other)
  Sender: FDA-Public Use
  Company Number: PHHY2011CA64556

PATIENT
  Sex: Female

DRUGS (2)
  1. SANDOSTATIN [Suspect]
     Indication: NEUROENDOCRINE TUMOUR
     Dosage: UNK UKN, BID
     Route: 058
     Dates: start: 20110711
  2. SANDOSTATIN LAR [Suspect]
     Indication: NEUROENDOCRINE TUMOUR
     Dosage: 20 MG, QMO
     Route: 030
     Dates: start: 20110726

REACTIONS (7)
  - DIARRHOEA [None]
  - MENTAL DISORDER [None]
  - VASCULITIS [None]
  - FALL [None]
  - MALAISE [None]
  - ABDOMINAL DISCOMFORT [None]
  - FATIGUE [None]
